FAERS Safety Report 6011631-X (Version None)
Quarter: 2008Q4

REPORT INFORMATION
  Report Type: 
  Country: None (occurrence: None)
  Receive Date: 20081218
  Receipt Date: 19860523
  Transmission Date: 20090506
  Serious: Yes (Death)
  Sender: FDA-Public Use
  Company Number: IT-ROCHE-860150013001

PATIENT
  Age: 45 Year
  Sex: Male

DRUGS (1)
  1. INTERFERON ALFA-2A [Suspect]
     Dosage: CUMULATIVE DOSE: 90 MIU.
     Route: 065
     Dates: start: 19840103, end: 19840120

REACTIONS (1)
  - MALIGNANT MELANOMA [None]
